FAERS Safety Report 8352947-1 (Version None)
Quarter: 2012Q2

REPORT INFORMATION
  Report Type: 
  Country: None (occurrence: None)
  Receive Date: 20120511
  Receipt Date: 20120510
  Transmission Date: 20120825
  Serious: Yes (Hospitalization)
  Sender: FDA-Public Use
  Company Number: CH-PFIZER INC-2012113864

PATIENT
  Age: 74 Year
  Sex: Male

DRUGS (6)
  1. ESCITALOPRAM [Concomitant]
     Dosage: 20 MG, 1X/DAY
     Route: 048
  2. PERINDOPRIL ERBUMINE [Concomitant]
     Dosage: 2.5 MG, 1X/DAY
     Route: 048
  3. MADOPAR [Concomitant]
     Dosage: 125 MG, 3X/DAY
     Route: 048
  4. IMOVANE [Suspect]
     Dosage: 11.25 MG, 1X/DAY
     Route: 048
     Dates: end: 20120405
  5. XANAX [Suspect]
     Dosage: 0.5 MG, 2X/DAY
     Route: 048
  6. NEBIVOLOL HCL [Concomitant]
     Dosage: 5 MG, 1X/DAY
     Route: 048

REACTIONS (1)
  - FALL [None]
